FAERS Safety Report 4975123-9 (Version None)
Quarter: 2006Q2

REPORT INFORMATION
  Report Type: 
  Country: None (occurrence: None)
  Receive Date: 20060414
  Receipt Date: 20060414
  Transmission Date: 20061013
  Serious: Yes (Other)
  Sender: FDA-Public Use
  Company Number: None

PATIENT
  Age: 64 Year
  Sex: Male
  Weight: 94.8 kg

DRUGS (18)
  1. TRAMADOL HCL [Suspect]
  2. CYCLOBENZAPRINE HCL [Suspect]
  3. MULTI-VITAMIN [Concomitant]
  4. METFORMIN HYDROCHLORIDE [Concomitant]
  5. PAROXETINE HCL [Concomitant]
  6. ATORVASTATIN CALCIUM [Concomitant]
  7. LISINOPRIL [Concomitant]
  8. CARVEDILOL [Concomitant]
  9. ACARBOSE [Concomitant]
  10. ASPIRIN [Concomitant]
  11. GLIPIZIDE [Concomitant]
  12. CHLORTHALIDONE [Concomitant]
  13. TRAMADOL HCL [Concomitant]
  14. ACETAMINOPHEN [Concomitant]
  15. CYCLOBENZAPRINE HCL [Concomitant]
  16. CAPSAICIN [Concomitant]
  17. HUMULIN N [Concomitant]
  18. OMEPRAZOLE [Concomitant]

REACTIONS (1)
  - DIZZINESS [None]
